FAERS Safety Report 5264720-1 (Version None)
Quarter: 2007Q1

REPORT INFORMATION
  Report Type: 
  Country: None (occurrence: None)
  Receive Date: 20061124
  Receipt Date: 20040701
  Transmission Date: 20070707
  Serious: No
  Sender: FDA-Public Use
  Company Number: 2004UW05128

PATIENT
  Age: 65 Year
  Sex: Male
  Weight: 97.5234 kg

DRUGS (11)
  1. PRILOSEC [Suspect]
     Indication: GASTROOESOPHAGEAL REFLUX DISEASE
     Dosage: 40 MG QD PO
     Route: 048
     Dates: start: 19960101
  2. MOTRIN [Suspect]
     Dosage: 600 MG QID PO
     Route: 048
  3. TOPROL-XL [Concomitant]
  4. FOLIC ACID [Concomitant]
  5. ZOCOR [Concomitant]
  6. MULTI-VITAMINS [Concomitant]
  7. CLARINEX [Concomitant]
  8. VITAMINS [Concomitant]
  9. ASPIRIN [Concomitant]
  10. PREVACID [Concomitant]
  11. PEPCID [Concomitant]

REACTIONS (1)
  - GASTRIC POLYPS [None]
